FAERS Safety Report 5899775-4 (Version None)
Quarter: 2008Q3

REPORT INFORMATION
  Report Type: 
  Country: None (occurrence: None)
  Receive Date: 20080926
  Receipt Date: 20080918
  Transmission Date: 20090109
  Serious: Yes (Death, Other)
  Sender: FDA-Public Use
  Company Number: GB-AMGEN-US309120

PATIENT
  Age: 54 Year

DRUGS (6)
  1. ENBREL [Suspect]
     Indication: RHEUMATOID ARTHRITIS
     Route: 058
     Dates: start: 20040901, end: 20080805
  2. WARFARIN SODIUM [Concomitant]
     Dosage: UNKNOWN
     Route: 065
  3. LANSOPRAZOLE [Concomitant]
     Dosage: UNKNOWN
     Route: 065
  4. PREDNISOLONE [Concomitant]
     Dosage: UNKNOWN
     Route: 065
  5. ASPIRIN [Concomitant]
     Dosage: UNKNOWN
     Route: 065
  6. ATORVASTATIN CALCIUM [Concomitant]
     Dosage: UNKNOWN
     Route: 065

REACTIONS (1)
  - SUBARACHNOID HAEMORRHAGE [None]
